FAERS Safety Report 10817742 (Version 4)
Quarter: 2015Q1

REPORT INFORMATION
  Report Type: Spontaneous
  Country: FI (occurrence: FI)
  Receive Date: 20150218
  Receipt Date: 20150304
  Transmission Date: 20150721
  Serious: Yes (Other)
  Sender: FDA-Public Use
  Company Number: FI-JNJFOC-20150205168

PATIENT
  Age: 34 Year
  Sex: Female

DRUGS (1)
  1. REMICADE [Suspect]
     Active Substance: INFLIXIMAB
     Indication: PSORIASIS
     Dosage: WEEKS 0, 2, 6, 11 AND 15 (THE PREGNANCY WEEK 32)
     Route: 042

REACTIONS (5)
  - Exposure during pregnancy [Recovered/Resolved with Sequelae]
  - Psoriasis [Unknown]
  - Drug effect decreased [Recovered/Resolved with Sequelae]
  - Premature labour [Recovered/Resolved]
  - Drug specific antibody present [Not Recovered/Not Resolved]
